FAERS Safety Report 6007707-3 (Version None)
Quarter: 2008Q4

REPORT INFORMATION
  Report Type: 
  Country: None (occurrence: None)
  Receive Date: 20081217
  Receipt Date: 20080519
  Transmission Date: 20090506
  Serious: No
  Sender: FDA-Public Use
  Company Number: US-ASTRAZENECA-2008UW10268

PATIENT
  Age: 84 Year
  Sex: Female
  Weight: 54.4 kg

DRUGS (7)
  1. CRESTOR [Suspect]
     Indication: BLOOD CHOLESTEROL
     Route: 048
  2. TOPROL-XL [Concomitant]
     Route: 048
  3. BENICAR [Concomitant]
  4. THERAGRAN M [Concomitant]
  5. VITAMIN D [Concomitant]
  6. CALCIUM [Concomitant]
  7. ASPIRIN [Concomitant]

REACTIONS (1)
  - COUGH [None]
